FAERS Safety Report 14681553 (Version 1)
Quarter: 2018Q1

REPORT INFORMATION
  Report Type: Spontaneous
  Country: US (occurrence: US)
  Receive Date: 20180326
  Receipt Date: 20180326
  Transmission Date: 20180509
  Serious: No
  Sender: FDA-Public Use
  Company Number: US-KASTLE THERAPEUTICS, LLC-2017KAS000027

PATIENT
  Age: 45 Year
  Sex: Male

DRUGS (9)
  1. KYNAMRO [Suspect]
     Active Substance: MIPOMERSEN SODIUM
     Indication: TYPE IIA HYPERLIPIDAEMIA
     Route: 058
     Dates: start: 201606
  2. ZETIA [Concomitant]
     Active Substance: EZETIMIBE
     Indication: BLOOD CHOLESTEROL
  3. SENTRY CARIDAD VITAMIN [Concomitant]
     Indication: VITAMIN SUPPLEMENTATION
  4. MECLIZINE [Concomitant]
     Active Substance: MECLIZINE HYDROCHLORIDE
     Indication: MOTION SICKNESS
  5. SENTRY CARIDAD VITAMIN [Concomitant]
     Indication: BLOOD CHOLESTEROL
  6. OMEGA 3 FATTY ACID [Concomitant]
     Active Substance: OMEGA-3 FATTY ACIDS
     Indication: BLOOD CHOLESTEROL
  7. KYNAMRO [Suspect]
     Active Substance: MIPOMERSEN SODIUM
     Indication: TYPE IIA HYPERLIPIDAEMIA
  8. CRESTOR [Concomitant]
     Active Substance: ROSUVASTATIN CALCIUM
     Indication: BLOOD CHOLESTEROL
  9. METFORMIN [Concomitant]
     Active Substance: METFORMIN HYDROCHLORIDE
     Indication: BLOOD GLUCOSE ABNORMAL

REACTIONS (3)
  - Laboratory test abnormal [Unknown]
  - Injection site erythema [Recovered/Resolved]
  - Injection site pain [Recovered/Resolved]

NARRATIVE: CASE EVENT DATE: 2017
